FAERS Safety Report 4815449-2 (Version None)
Quarter: 2005Q4

REPORT INFORMATION
  Report Type: 
  Country: None (occurrence: None)
  Receive Date: 20051027
  Receipt Date: 20051027
  Transmission Date: 20060501
  Serious: Yes (Hospitalization, Other)
  Sender: FDA-Public Use
  Company Number: None

PATIENT
  Sex: Female
  Weight: 95 kg

DRUGS (2)
  1. CYCLOPHOSPHAMIDE [Suspect]
     Indication: BREAST CANCER
     Dosage: SEE IMAGE
     Dates: start: 20050729, end: 20050729
  2. DOXORUBICIN HYDROCHLORIDE [Suspect]
     Dosage: SEE IMAGE
     Dates: start: 20050729, end: 20050729

REACTIONS (4)
  - CELLULITIS [None]
  - ERYTHEMA [None]
  - OEDEMA [None]
  - PAIN [None]
